FAERS Safety Report 22623139 (Version 1)
Quarter: 2023Q2

REPORT INFORMATION
  Report Type: Spontaneous
  Country: US (occurrence: US)
  Receive Date: 20230621
  Receipt Date: 20230621
  Transmission Date: 20230722
  Serious: No
  Sender: FDA-Public Use
  Company Number: US-009507513-2306USA006445

PATIENT
  Sex: Female

DRUGS (1)
  1. SEGLUROMET [Suspect]
     Active Substance: ERTUGLIFLOZIN PIDOLATE\METFORMIN HYDROCHLORIDE
     Route: 048

REACTIONS (4)
  - Product dose omission issue [Unknown]
  - Insurance issue [Unknown]
  - Inability to afford medication [Unknown]
  - No adverse event [Unknown]
